FAERS Safety Report 25126839 (Version 2)
Quarter: 2025Q2

REPORT INFORMATION
  Report Type: Spontaneous
  Country: US (occurrence: US)
  Receive Date: 20250327
  Receipt Date: 20250403
  Transmission Date: 20250716
  Serious: Yes (Other)
  Sender: CSL BEHRING
  Company Number: US-BEH-2025200118

PATIENT
  Age: 39 Year
  Sex: Male

DRUGS (23)
  1. MIRCERA [Suspect]
     Active Substance: METHOXY POLYETHYLENE GLYCOL-EPOETIN BETA
     Indication: Nephrogenic anaemia
     Route: 058
     Dates: start: 2018, end: 202412
  2. EPOGEN [Concomitant]
     Active Substance: ERYTHROPOIETIN
     Dosage: 20000 IU, TIW
     Route: 058
     Dates: start: 202501
  3. MUCOMYST [Concomitant]
     Active Substance: ACETYLCYSTEINE
     Dosage: 4 ML, QID
  4. ALBUTEROL [Concomitant]
     Active Substance: ALBUTEROL
     Route: 055
  5. ASCORBIC ACID [Concomitant]
     Active Substance: ASCORBIC ACID
     Dosage: 1 DF, BID
     Route: 048
  6. ROCALTROL [Concomitant]
     Active Substance: CALCITRIOL
     Dosage: 1 DF, OD
     Route: 048
  7. SENSIPAR [Concomitant]
     Active Substance: CINACALCET HYDROCHLORIDE
     Dosage: 1 DF, OD
     Route: 048
  8. VITAMIN B12 [Concomitant]
     Active Substance: CYANOCOBALAMIN
     Dosage: 1 DF, OD
     Route: 048
  9. VITAMIN B12 [Concomitant]
     Active Substance: CYANOCOBALAMIN
  10. FLEXERIL [Concomitant]
     Active Substance: CYCLOBENZAPRINE HYDROCHLORIDE
     Indication: Muscle spasms
     Dosage: 1 DF, OD, FOR 14 DAYS
  11. MARINOL [Concomitant]
     Active Substance: DRONABINOL
     Dosage: 1 DF, OD
     Route: 048
  12. DURAGESIC [Concomitant]
     Active Substance: FENTANYL
  13. DILAUDID [Concomitant]
     Active Substance: HYDROMORPHONE HYDROCHLORIDE
     Indication: Pain
     Dosage: 1-2 TABLETS
  14. ATARAX [Concomitant]
     Active Substance: HYDROXYZINE HYDROCHLORIDE
     Dosage: 1 DF, TID
     Route: 048
  15. VENOFER [Concomitant]
     Active Substance: IRON SUCROSE
     Dosage: 50 MG, QW
     Route: 040
  16. NEPHRON FA [Concomitant]
     Active Substance: ASCORBIC ACID\BIOTIN\COBALAMIN\FOLIC ACID\IRON\NIACINAMIDE\PANTOTHENIC ACID\PYRIDOXINE HYDROCHLORIDE
     Dosage: 1 DF, OD
     Route: 048
  17. KEPPRA [Concomitant]
     Active Substance: LEVETIRACETAM
     Dosage: 500 MG, OD
     Route: 048
  18. PRILOSEC [Concomitant]
     Active Substance: OMEPRAZOLE MAGNESIUM
     Dosage: 1 DF, BID
     Route: 048
  19. ROXICODONE [Concomitant]
     Active Substance: OXYCODONE HYDROCHLORIDE
     Dosage: 5 MG, TID
     Route: 048
  20. MIRALAX [Concomitant]
     Active Substance: POLYETHYLENE GLYCOL 3350
  21. KLOR-CON M10 [Concomitant]
     Active Substance: POTASSIUM CHLORIDE
     Route: 048
  22. DELTASONE [Concomitant]
     Active Substance: PREDNISONE
     Dosage: 20 MG, BID
  23. NPLATE [Concomitant]
     Active Substance: ROMIPLOSTIM
     Dosage: 282 MG, QW

REACTIONS (1)
  - Aplasia pure red cell [Unknown]

NARRATIVE: CASE EVENT DATE: 20250320
